FAERS Safety Report 7993233 (Version 2)
Quarter: 2013Q1

REPORT INFORMATION
  Report Type: Report from Study
  Country: FR (occurrence: FR)
  Receive Date: 20110616
  Receipt Date: 20130322
  Transmission Date: 20140127
  Serious: Yes (Other)
  Sender: FDA-Public Use
  Company Number: FR-MPIJNJ-2011-02453

PATIENT
  Sex: 0

DRUGS (2)
  1. VELCADE [Suspect]
     Indication: WALDENSTROM^S MACROGLOBULINAEMIA
     Dosage: 2.6 MG, UNK
     Route: 042
     Dates: start: 20100921, end: 20110114
  2. DEXAMETHASONE [Concomitant]
     Indication: WALDENSTROM^S MACROGLOBULINAEMIA
     Dosage: 20 MG, UNK
     Route: 048
     Dates: start: 20101102, end: 20110115

REACTIONS (1)
  - Restless legs syndrome [Recovering/Resolving]
